FAERS Safety Report 21445787 (Version 1)
Quarter: 2022Q4

REPORT INFORMATION
  Report Type: Spontaneous
  Country: US (occurrence: None)
  Receive Date: 20221011
  Receipt Date: 20221011
  Transmission Date: 20230113
  Serious: Yes (Hospitalization)
  Sender: FDA-Public Use
  Company Number: None

PATIENT
  Age: 64 Year
  Sex: Female
  Weight: 64 kg

DRUGS (14)
  1. EXEMESTANE [Suspect]
     Active Substance: EXEMESTANE
     Indication: Breast cancer
     Dosage: FREQUENCY : DAILY;?
     Route: 048
     Dates: start: 20220916, end: 20221011
  2. EXEMESTANE [Suspect]
     Active Substance: EXEMESTANE
     Indication: Metastases to bone
  3. EVEROLIMUS [Suspect]
     Active Substance: EVEROLIMUS
     Indication: Breast cancer
     Dosage: FREQUENCY : DAILY;?
     Route: 048
     Dates: start: 20220916, end: 20221011
  4. EVEROLIMUS [Suspect]
     Active Substance: EVEROLIMUS
     Indication: Bone cancer
  5. ALPRAZOLAM [Concomitant]
     Active Substance: ALPRAZOLAM
     Dates: start: 20220914
  6. Amitriptyline 50 [Concomitant]
     Dates: start: 20220914
  7. LASIX [Concomitant]
     Active Substance: FUROSEMIDE
     Dates: start: 20220914
  8. LIPITOR [Concomitant]
     Active Substance: ATORVASTATIN CALCIUM
     Dates: start: 20220914
  9. percocet 10mg [Concomitant]
     Dates: start: 20220914
  10. PROVIGIL [Concomitant]
     Active Substance: MODAFINIL
     Dates: start: 20220914
  11. RIVASTIGMINE [Concomitant]
     Active Substance: RIVASTIGMINE
     Dates: start: 20220915
  12. SYNTHROID [Concomitant]
     Active Substance: LEVOTHYROXINE SODIUM
     Dates: start: 20220914
  13. ULTRAM [Concomitant]
     Active Substance: TRAMADOL HYDROCHLORIDE
     Dates: start: 20220914
  14. ZOLPIDEM [Concomitant]
     Active Substance: ZOLPIDEM TARTRATE
     Dates: start: 20220914

REACTIONS (1)
  - Abdominal pain [None]

NARRATIVE: CASE EVENT DATE: 20221011
